FAERS Safety Report 8323063 (Version 4)
Quarter: 2015Q2

REPORT INFORMATION
  Report Type: Spontaneous
  Country: FI (occurrence: FI)
  Receive Date: 20120105
  Receipt Date: 20150527
  Transmission Date: 20150821
  Serious: Yes (Death, Other)
  Sender: FDA-Public Use
  Company Number: FI-ROCHE-1027241

PATIENT
  Age: 45 Year
  Sex: Female

DRUGS (7)
  1. MABTHERA [Suspect]
     Active Substance: RITUXIMAB
     Indication: SYSTEMIC LUPUS ERYTHEMATOSUS
     Dosage: TWO TIMES A YEAR WITH TWO WEEKS INTERVALS FOR SIX YEARS^ TIME, TOTALLY 12 INFUSIONS WERE ADMINISTERE
     Route: 042
     Dates: start: 2011, end: 201108
  2. PREDNISOLONE. [Suspect]
     Active Substance: PREDNISOLONE
     Indication: SYSTEMIC LUPUS ERYTHEMATOSUS
     Route: 048
     Dates: start: 2004
  3. AZATHIOPRINE. [Concomitant]
     Active Substance: AZATHIOPRINE
     Dosage: 50MG X 1
     Route: 065
  4. OXIKLORIN [Concomitant]
     Active Substance: HYDROXYCHLOROQUINE SULFATE
     Indication: SYSTEMIC LUPUS ERYTHEMATOSUS
     Dosage: 300 MGX 1
     Route: 065
     Dates: end: 20111125
  5. NIFEDIPINE. [Concomitant]
     Active Substance: NIFEDIPINE
     Route: 065
  6. IMUREL [Suspect]
     Active Substance: AZATHIOPRINE SODIUM
     Indication: SYSTEMIC LUPUS ERYTHEMATOSUS
     Dosage: 50 MG X 1
     Route: 065
     Dates: end: 20111125
  7. PREDNISOLON [Concomitant]
     Active Substance: PREDNISOLONE
     Dosage: 5 MG X 1
     Route: 065
     Dates: start: 2004

REACTIONS (4)
  - Herpes zoster [Unknown]
  - Progressive multifocal leukoencephalopathy [Fatal]
  - Herpes zoster [Recovered/Resolved with Sequelae]
  - Pneumonia [Fatal]

NARRATIVE: CASE EVENT DATE: 2007
